FAERS Safety Report 5338749-9 (Version None)
Quarter: 2007Q2

REPORT INFORMATION
  Report Type: 
  Country: None (occurrence: None)
  Receive Date: 20070322
  Receipt Date: 20060320
  Transmission Date: 20071010
  Serious: Yes (Hospitalization)
  Sender: FDA-Public Use
  Company Number: 200610627BCC

PATIENT
  Age: 85 Year
  Sex: Female
  Weight: 51.7101 kg

DRUGS (5)
  1. ALEVE [Suspect]
     Indication: OSTEOPOROSIS
     Dosage: 440 MG, PRN, ORAL
     Route: 048
     Dates: start: 20060101
  2. METOPROLOL SUCCINATE [Concomitant]
  3. ENALAPRIL MALEATE [Concomitant]
  4. PEPCID [Concomitant]
  5. NITROFURANTOIN [Concomitant]

REACTIONS (4)
  - GASTROINTESTINAL HAEMORRHAGE [None]
  - HAEMATOCHEZIA [None]
  - HAEMOPTYSIS [None]
  - SPUTUM DISCOLOURED [None]
